FAERS Safety Report 4606221-7 (Version None)
Quarter: 2005Q1

REPORT INFORMATION
  Report Type: 
  Country: None (occurrence: None)
  Receive Date: 20050311
  Receipt Date: 20050304
  Transmission Date: 20050727
  Serious: Yes (Other)
  Sender: FDA-Public Use
  Company Number: US-ABBOTT-05P-163-0292840-00

PATIENT
  Sex: Male
  Weight: 74.91 kg

DRUGS (9)
  1. BIAXIN [Suspect]
     Indication: INFLUENZA
     Route: 048
     Dates: start: 20050228, end: 20050303
  2. ECHINACEA [Concomitant]
     Indication: DRUG USE FOR UNKNOWN INDICATION
     Route: 048
  3. IBUPROFEN [Concomitant]
     Indication: DRUG USE FOR UNKNOWN INDICATION
     Route: 048
  4. EFFEXOR [Concomitant]
     Indication: ANTIDEPRESSANT THERAPY
     Route: 048
     Dates: start: 20040601
  5. NEFAZODONE HCL [Concomitant]
     Indication: ANTIDEPRESSANT THERAPY
     Route: 048
     Dates: start: 20020101
  6. ADVAIR DISKUS 100/50 [Concomitant]
     Indication: ASTHMA
     Dosage: 100/50
     Route: 055
     Dates: start: 20000101
  7. AMOXICILLIN AND CLAVULANATE POTASSIUM [Concomitant]
     Indication: ASTHMA
     Route: 048
     Dates: start: 20020101
  8. FLUTICASONE PROPIONATE [Concomitant]
     Indication: DRUG USE FOR UNKNOWN INDICATION
     Dosage: SPRAYS
     Route: 055
  9. CENTRUM [Concomitant]
     Indication: DRUG USE FOR UNKNOWN INDICATION
     Route: 048

REACTIONS (5)
  - CONFUSIONAL STATE [None]
  - DYSGEUSIA [None]
  - EMOTIONAL DISORDER [None]
  - FEAR [None]
  - INSOMNIA [None]
